FAERS Safety Report 9175244 (Version 1)
Quarter: 2013Q1

REPORT INFORMATION
  Report Type: Spontaneous
  Country: US (occurrence: US)
  Receive Date: 20130320
  Receipt Date: 20130320
  Transmission Date: 20140127
  Serious: No
  Sender: FDA-Public Use
  Company Number: US-BAYER-2013-034586

PATIENT
  Age: 77 Year
  Sex: Female
  Weight: 65.76 kg

DRUGS (9)
  1. ALEVE CAPLET/TABLET,MIDOL EXTENDED RELIEF CAPLET [Suspect]
     Dosage: 1 DF, PRN
     Route: 048
  2. ALEVE LIQUID GELS [Suspect]
     Dosage: 1 DF, PRN
     Route: 048
  3. PLAVIX [Concomitant]
     Dosage: UNK
  4. IMDUR [Concomitant]
  5. BAYER ASPIRIN REGIMEN REGULAR 325 MG STRENGTH [Concomitant]
  6. LIPITOR [Concomitant]
  7. ATENOLOL [Concomitant]
  8. CVS DAILY GUMMIES [Concomitant]
  9. BAYER EXTRA STRENGTH BACK + BODY PAIN [Concomitant]
     Indication: PAIN
     Dosage: UNK UNK, PRN

REACTIONS (1)
  - Renal disorder [Recovered/Resolved]
